FAERS Safety Report 25439858 (Version 1)
Quarter: 2025Q2

REPORT INFORMATION
  Report Type: Spontaneous
  Country: US (occurrence: None)
  Receive Date: 20250613
  Receipt Date: 20250613
  Transmission Date: 20250716
  Serious: Yes (Life-Threatening, Hospitalization)
  Sender: FDA-CTU
  Company Number: None

PATIENT
  Age: 55 Year
  Sex: Male
  Weight: 68.5 kg

DRUGS (16)
  1. CEFTRIAXONE SODIUM [Suspect]
     Active Substance: CEFTRIAXONE SODIUM
     Indication: Pneumonia haemophilus
     Dosage: 1 G GRAM(S) DAILY INTRAVENOUS?
     Route: 042
     Dates: start: 20250530, end: 20250530
  2. Aspirin 81 mg PO QD [Concomitant]
  3. Carvedilol 12.5 mg PO BID [Concomitant]
  4. Doxycycline 100 mg PO BID [Concomitant]
  5. Empagliflozin 10 mg PO QD [Concomitant]
  6. Enoxaparin 40 mg SQ QD [Concomitant]
  7. Guaifenesin 600 mg PO BID [Concomitant]
  8. Hydralazine 25 mg PO TID [Concomitant]
  9. Insulin Lispro Sliding Scale [Concomitant]
  10. Isosorbide Dinitrate 10 mg PO TID [Concomitant]
  11. Prednisone 40 mg PO QD [Concomitant]
  12. Insulin Regular Drip Continuous - Titrated [Concomitant]
  13. Famotidine 20 mg PO QD [Concomitant]
  14. Furosemide 40 mg PO QD [Concomitant]
  15. Losartan 100 mg PO QD [Concomitant]
  16. Spironolactone 12.5 mg PO QD [Concomitant]

REACTIONS (5)
  - Cardiac arrest [None]
  - Anaphylactic shock [None]
  - Acute respiratory failure [None]
  - Hypercapnia [None]
  - Anaphylactic reaction [None]

NARRATIVE: CASE EVENT DATE: 20250530
